FAERS Safety Report 17739949 (Version 1)
Quarter: 2020Q2

REPORT INFORMATION
  Report Type: Spontaneous
  Country: US (occurrence: US)
  Receive Date: 20200502
  Receipt Date: 20200502
  Transmission Date: 20200714
  Serious: Yes (Other)
  Sender: FDA-Public Use
  Company Number: None

PATIENT
  Age: 62 Year
  Sex: Female

DRUGS (1)
  1. HUMIRA [Suspect]
     Active Substance: ADALIMUMAB
     Indication: CROHN^S DISEASE
     Dosage: ?          OTHER DOSE:40/0.4 MG/ML;?
     Route: 058
     Dates: start: 20200317

REACTIONS (2)
  - Device malfunction [None]
  - Arthritis [None]

NARRATIVE: CASE EVENT DATE: 20200416
